FAERS Safety Report 12257799 (Version 1)
Quarter: 2016Q2

REPORT INFORMATION
  Report Type: Spontaneous
  Country: US (occurrence: US)
  Receive Date: 20160412
  Receipt Date: 20160412
  Transmission Date: 20160815
  Serious: No
  Sender: FDA-Public Use
  Company Number: US-TEVA-651865USA

PATIENT
  Sex: Female

DRUGS (1)
  1. COPAXONE [Suspect]
     Active Substance: GLATIRAMER ACETATE
     Dates: end: 20151231

REACTIONS (2)
  - Needle issue [Recovered/Resolved]
  - Injection site scar [Recovered/Resolved]

NARRATIVE: CASE EVENT DATE: 20151231
